FAERS Safety Report 24211686 (Version 2)
Quarter: 2024Q3

REPORT INFORMATION
  Report Type: Report from Study
  Country: IL (occurrence: IL)
  Receive Date: 20240814
  Receipt Date: 20240912
  Transmission Date: 20241016
  Serious: Yes (Hospitalization)
  Sender: TAIHO ONCOLOGY INC
  Company Number: IL-SERVIER-S24010259

PATIENT
  Age: 31 Year
  Sex: Male

DRUGS (1)
  1. LONSURF [Suspect]
     Active Substance: TIPIRACIL HYDROCHLORIDE\TRIFLURIDINE
     Indication: Colon cancer metastatic
     Dosage: 40 MG, BID, ON D1-5, D8-12 OF EACH 28-DAY CYCLE
     Route: 048
     Dates: start: 20240411

REACTIONS (3)
  - Stoma creation [Unknown]
  - Metastases to abdominal cavity [Not Recovered/Not Resolved]
  - Blood test abnormal [Not Recovered/Not Resolved]

NARRATIVE: CASE EVENT DATE: 20240805
